FAERS Safety Report 23410666 (Version 3)
Quarter: 2025Q3

REPORT INFORMATION
  Report Type: Spontaneous
  Country: US (occurrence: US)
  Receive Date: 20240117
  Receipt Date: 20250905
  Transmission Date: 20251021
  Serious: Yes (Life-Threatening, Hospitalization)
  Sender: SK LIFE SCIENCE
  Company Number: US-SK LIFE SCIENCE, INC-SKPVG-2022-000985

PATIENT

DRUGS (9)
  1. XCOPRI [Suspect]
     Active Substance: CENOBAMATE
     Indication: Epilepsy
     Route: 048
     Dates: start: 20220822
  2. XCOPRI [Suspect]
     Active Substance: CENOBAMATE
     Indication: Seizure
     Route: 048
     Dates: end: 20221220
  3. XCOPRI [Suspect]
     Active Substance: CENOBAMATE
     Dosage: 100 MILLIGRAM, ONCE DAILY
     Route: 048
     Dates: end: 20231006
  4. XCOPRI [Suspect]
     Active Substance: CENOBAMATE
     Dosage: 100 MILLIGRAM, ONCE DAILY
     Route: 048
     Dates: start: 2023, end: 202407
  5. XCOPRI [Suspect]
     Active Substance: CENOBAMATE
     Dosage: 100 MILLIGRAM, ONCE DAILY
     Route: 048
     Dates: start: 202407, end: 2025
  6. KEPPRA [Concomitant]
     Active Substance: LEVETIRACETAM
     Indication: Seizure
     Dosage: 4000 MILLIGRAM, DAILY
     Route: 065
  7. TRILEPTAL [Concomitant]
     Active Substance: OXCARBAZEPINE
     Indication: Seizure
     Dosage: 600 MILLIGRAM, THREE TIMES DAILY (1800MG TOTAL DAILY)
     Route: 065
  8. TRILEPTAL [Concomitant]
     Active Substance: OXCARBAZEPINE
     Dosage: 1200 MILLIGRAM, TWICE A DAY
     Route: 065
  9. BRIVIACT [Concomitant]
     Active Substance: BRIVARACETAM
     Indication: Product used for unknown indication
     Dosage: 100 MILLIGRAM, BID
     Route: 065

REACTIONS (8)
  - Seizure [Unknown]
  - Seizure [Unknown]
  - Product dose omission issue [Recovered/Resolved]
  - Seizure [Recovered/Resolved]
  - Product dose omission issue [Recovered/Resolved]
  - Product dose omission issue [Recovered/Resolved]
  - Seizure [Recovered/Resolved]
  - Therapy cessation [Not Recovered/Not Resolved]

NARRATIVE: CASE EVENT DATE: 20221221
